FAERS Safety Report 10923871 (Version 1)
Quarter: 2015Q1

REPORT INFORMATION
  Report Type: Spontaneous
  Country: US (occurrence: None)
  Receive Date: 20150316
  Receipt Date: 20150316
  Transmission Date: 20150721
  Serious: Yes (Disabling, Other)
  Sender: FDA-Public Use
  Company Number: None

PATIENT
  Age: 45 Year
  Sex: Male
  Weight: 70.31 kg

DRUGS (1)
  1. LEVAQUIN [Suspect]
     Active Substance: LEVOFLOXACIN
     Indication: URINARY TRACT INFECTION
     Dosage: 1/1
     Route: 048
     Dates: start: 20051102

REACTIONS (8)
  - Tendon pain [None]
  - Adverse event [None]
  - Headache [None]
  - Dyspnoea [None]
  - Abdominal pain [None]
  - Tinnitus [None]
  - Asthenia [None]
  - Vertigo [None]

NARRATIVE: CASE EVENT DATE: 20051104
